FAERS Safety Report 7682362-5 (Version None)
Quarter: 2011Q3

REPORT INFORMATION
  Report Type: 
  Country: None (occurrence: None)
  Receive Date: 20110815
  Receipt Date: 20110809
  Transmission Date: 20111222
  Serious: Yes (Hospitalization)
  Sender: FDA-Public Use
  Company Number: US-BRISTOL-MYERS SQUIBB COMPANY-15731466

PATIENT
  Age: 57 Year
  Sex: Male

DRUGS (7)
  1. PLACEBO [Suspect]
     Indication: NON-SMALL CELL LUNG CANCER
     Route: 042
     Dates: start: 20110222, end: 20110314
  2. BLINDED: CT-322 [Suspect]
     Indication: NON-SMALL CELL LUNG CANCER
     Dosage: 02FEB11-3MAY11
     Route: 042
     Dates: start: 20110222, end: 20110314
  3. BLINDED: BEVACIZUMAB [Suspect]
     Indication: NON-SMALL CELL LUNG CANCER
     Route: 042
     Dates: start: 20110222, end: 20110314
  4. OMEPRAZOLE [Concomitant]
     Route: 048
     Dates: start: 20110118
  5. DURAGESIC-100 [Concomitant]
     Dosage: 12MCG FROM 12APR11
     Dates: start: 20110324
  6. CARBOPLATIN [Suspect]
     Indication: NON-SMALL CELL LUNG CANCER
     Route: 042
     Dates: start: 20110222, end: 20110314
  7. PACLITAXEL [Suspect]
     Indication: NON-SMALL CELL LUNG CANCER
     Route: 042
     Dates: start: 20110222, end: 20110314

REACTIONS (2)
  - HAEMOGLOBIN DECREASED [None]
  - DYSPNOEA [None]
